FAERS Safety Report 10142859 (Version 2)
Quarter: 2014Q2

REPORT INFORMATION
  Report Type: Spontaneous
  Country: TR (occurrence: TR)
  Receive Date: 20140430
  Receipt Date: 20140513
  Transmission Date: 20141212
  Serious: Yes (Other)
  Sender: FDA-Public Use
  Company Number: TR-JNJFOC-20140414663

PATIENT
  Age: 54 Year
  Sex: Female

DRUGS (3)
  1. PALIPERIDONE [Suspect]
     Indication: UNEVALUABLE EVENT
     Route: 048
  2. LAMOTRIGINE [Concomitant]
     Indication: UNEVALUABLE EVENT
     Route: 065
  3. LORAZEPAM [Concomitant]
     Indication: UNEVALUABLE EVENT
     Route: 065

REACTIONS (3)
  - Hypothyroidism [Recovered/Resolved]
  - Sedation [Unknown]
  - Tremor [Unknown]
